FAERS Safety Report 6651531-5 (Version None)
Quarter: 2010Q1

REPORT INFORMATION
  Report Type: 
  Country: None (occurrence: None)
  Receive Date: 20100325
  Receipt Date: 20100318
  Transmission Date: 20100710
  Serious: Yes (Other)
  Sender: FDA-Public Use
  Company Number: A0850862A

PATIENT
  Sex: Female

DRUGS (2)
  1. AVANDIA [Suspect]
     Dosage: 1TAB PER DAY
     Route: 048
     Dates: start: 20080301, end: 20090701
  2. THYROID MEDICATION [Concomitant]

REACTIONS (2)
  - ANGINA PECTORIS [None]
  - CARDIAC FLUTTER [None]
